FAERS Safety Report 26083473 (Version 1)
Quarter: 2025Q4

REPORT INFORMATION
  Report Type: Spontaneous
  Country: US (occurrence: US)
  Receive Date: 20251124
  Receipt Date: 20251124
  Transmission Date: 20260118
  Serious: No
  Sender: ABBVIE
  Company Number: US-ABBVIE-6556224

PATIENT
  Age: 28 Year
  Sex: Female

DRUGS (4)
  1. LILETTA [Suspect]
     Active Substance: LEVONORGESTREL
     Indication: Endometriosis
     Dosage: TIME INTERVAL: AS NECESSARY
     Route: 015
     Dates: start: 20251009, end: 20251009
  2. SLYND [Concomitant]
     Active Substance: DROSPIRENONE
     Indication: Product used for unknown indication
     Dosage: TAKE 1 TABLET (4 MG) BY ORAL ROUTE ONCE DAILY AT THE SAME TIME EACH DAY SKIPPING PLACEBO PILLS
     Route: 048
     Dates: start: 20251009
  3. BETADINE [Concomitant]
     Active Substance: POVIDONE-IODINE
     Indication: Product used for unknown indication
  4. SILVER NITRATE [Concomitant]
     Active Substance: SILVER NITRATE
     Indication: Product used for unknown indication

REACTIONS (2)
  - Procedural pain [Unknown]
  - Product contamination [Unknown]

NARRATIVE: CASE EVENT DATE: 20251009
